FAERS Safety Report 19865183 (Version 1)
Quarter: 2021Q3

REPORT INFORMATION
  Report Type: Spontaneous
  Country: US (occurrence: US)
  Receive Date: 20210921
  Receipt Date: 20210921
  Transmission Date: 20211014
  Serious: No
  Sender: FDA-Public Use
  Company Number: None

PATIENT
  Age: 77 Year
  Sex: Male
  Weight: 102 kg

DRUGS (14)
  1. CENTRUM SILVER [Concomitant]
     Active Substance: MINERALS\VITAMINS
  2. MERCAPTOPURINE 50MG [Concomitant]
     Active Substance: MERCAPTOPURINE
  3. SILDENAFIL CITRATE 25MG [Concomitant]
  4. LANSOPRAZOLE 30MG [Concomitant]
     Active Substance: LANSOPRAZOLE
  5. VITAMIN D 2000IU [Concomitant]
  6. TAMSULOSIN 0.4MG [Concomitant]
     Active Substance: TAMSULOSIN
  7. TEMOZOLOMIDE. [Suspect]
     Active Substance: TEMOZOLOMIDE
     Indication: BRAIN NEOPLASM MALIGNANT
     Route: 048
     Dates: start: 20210520, end: 20210921
  8. ATORVASTATIN 20MG [Concomitant]
     Active Substance: ATORVASTATIN
  9. DEXAMETHASONE 1MG [Concomitant]
  10. LISINOPRIL. [Concomitant]
     Active Substance: LISINOPRIL
  11. MOVE FREE JOINT HEALTH ADVANCE [Concomitant]
  12. FOLIC ACID. [Concomitant]
     Active Substance: FOLIC ACID
  13. TEMOZOLOMIDE. [Suspect]
     Active Substance: TEMOZOLOMIDE
     Indication: BRAIN NEOPLASM MALIGNANT
     Route: 048
     Dates: start: 20210520, end: 20210921
  14. RESTASIS MULTIDOSE 0.05% [Concomitant]

REACTIONS (1)
  - General physical health deterioration [None]

NARRATIVE: CASE EVENT DATE: 20210921
